FAERS Safety Report 24993463 (Version 2)
Quarter: 2025Q2

REPORT INFORMATION
  Report Type: Report from Study
  Country: TH (occurrence: TH)
  Receive Date: 20250221
  Receipt Date: 20250401
  Transmission Date: 20250717
  Serious: Yes (Other)
  Sender: TAKEDA
  Company Number: TH-TAKEDA-2024TUS037942

PATIENT
  Age: 56 Year
  Sex: Female

DRUGS (1)
  1. VEDOLIZUMAB [Suspect]
     Active Substance: VEDOLIZUMAB
     Indication: Colitis ulcerative
     Dates: start: 20230321, end: 20250109

REACTIONS (3)
  - Clostridium difficile infection [Unknown]
  - Carpal tunnel syndrome [Unknown]
  - Escherichia infection [Unknown]
